FAERS Safety Report 14453860 (Version 1)
Quarter: 2018Q1

REPORT INFORMATION
  Report Type: Spontaneous
  Country: CN (occurrence: CN)
  Receive Date: 20180129
  Receipt Date: 20180129
  Transmission Date: 20180509
  Serious: Yes (Congenital Anomaly, Other)
  Sender: FDA-Public Use
  Company Number: CN-PFIZER INC-2018026258

PATIENT
  Sex: Male
  Weight: 2.2 kg

DRUGS (2)
  1. CISPLATIN. [Suspect]
     Active Substance: CISPLATIN
     Indication: CERVIX CARCINOMA STAGE II
     Dosage: 50 MG/M2, CYCLIC (EVERY 2 WEEKS) (2 CYCLES AT 27+2 AND 29+2 WEEKS)
     Route: 064
  2. PACLITAXEL. [Suspect]
     Active Substance: PACLITAXEL
     Indication: CERVIX CARCINOMA STAGE II
     Dosage: 75 MG/M2, CYCLIC (EVERY 2 WEEKS) (2 CYCLES AT 27+2 AND 29+2 WEEKS)
     Route: 064

REACTIONS (3)
  - Caesarean section [Recovered/Resolved]
  - Maternal exposure during pregnancy [Recovered/Resolved]
  - Low birth weight baby [Recovered/Resolved]
